FAERS Safety Report 5064903-X (Version None)
Quarter: 2006Q3

REPORT INFORMATION
  Report Type: 
  Country: None (occurrence: None)
  Receive Date: 20060726
  Receipt Date: 20060721
  Transmission Date: 20061208
  Serious: Yes (Death)
  Sender: FDA-Public Use
  Company Number: 227391

PATIENT
  Age: 76 Year
  Sex: Male

DRUGS (1)
  1. GRTPA (ALTEPLASE) PWDR + SOLVENT, INFUSION SOLN [Suspect]
     Indication: CEREBROVASCULAR ACCIDENT
     Dosage: INTRAVENOUS
     Route: 042

REACTIONS (2)
  - CEREBRAL INFARCTION [None]
  - OEDEMA [None]
